FAERS Safety Report 6722539-6 (Version None)
Quarter: 2010Q2

REPORT INFORMATION
  Report Type: 
  Country: None (occurrence: None)
  Receive Date: 20100512
  Receipt Date: 20100504
  Transmission Date: 20101027
  Serious: Yes (Other)
  Sender: FDA-Public Use
  Company Number: GB-JNJFOC-20100404534

PATIENT
  Sex: Female

DRUGS (1)
  1. RISPERDAL CONSTA [Suspect]
     Indication: DEVICE MALFUNCTION

REACTIONS (2)
  - DEVICE MALFUNCTION [None]
  - INJURY ASSOCIATED WITH DEVICE [None]
